FAERS Safety Report 25252171 (Version 3)
Quarter: 2025Q2

REPORT INFORMATION
  Report Type: Report from Study
  Country: CA (occurrence: CA)
  Receive Date: 20250429
  Receipt Date: 20250509
  Transmission Date: 20250717
  Serious: Yes (Other)
  Sender: HLS THERAPEUTICS
  Company Number: CA-HLS-202501061

PATIENT
  Age: 26 Year
  Sex: Male
  Weight: 131 kg

DRUGS (16)
  1. CLOZARIL [Suspect]
     Active Substance: CLOZAPINE
     Indication: Schizophrenia
     Route: 048
     Dates: start: 20250131
  2. CLOZARIL [Suspect]
     Active Substance: CLOZAPINE
     Indication: Schizophrenia
     Dosage: STRENGTH: 200 MG, ORAL, EVERY MORNING, TAKE 2 TABLETS (200 MG) BY MOUTH EVERY MORNING WITH BREAKFAST
     Route: 048
     Dates: start: 20210415
  3. CLOZARIL [Suspect]
     Active Substance: CLOZAPINE
     Indication: Schizophrenia
     Dosage: STRENGTH: 300 MG, ORAL, NIGHTLY
     Route: 048
     Dates: start: 20210218
  4. SENOKOT [Concomitant]
     Active Substance: SENNOSIDES
     Indication: Product used for unknown indication
     Route: 048
  5. CRESTOR [Concomitant]
     Active Substance: ROSUVASTATIN CALCIUM
     Indication: Product used for unknown indication
     Route: 048
     Dates: start: 20230612
  6. LYRICA [Concomitant]
     Active Substance: PREGABALIN
     Indication: Product used for unknown indication
     Route: 048
     Dates: end: 20250320
  7. PANTOPRAZOLE SODIUM [Concomitant]
     Active Substance: PANTOPRAZOLE SODIUM
     Indication: Product used for unknown indication
     Route: 048
  8. GLUCOPHAGE [Concomitant]
     Active Substance: METFORMIN HYDROCHLORIDE
     Indication: Product used for unknown indication
     Route: 048
     Dates: start: 20220218
  9. SYNTHROID [Concomitant]
     Active Substance: LEVOTHYROXINE SODIUM
     Indication: Product used for unknown indication
     Route: 048
  10. Cardiaem CD [Concomitant]
     Indication: Tachycardia
     Route: 048
     Dates: start: 20231008
  11. Cardiaem CD [Concomitant]
     Indication: Tachycardia
     Route: 048
  12. DECAORON [Concomitant]
     Indication: Product used for unknown indication
     Route: 048
     Dates: start: 20250310
  13. ABILIFY [Concomitant]
     Active Substance: ARIPIPRAZOLE
     Indication: Affective disorder
     Route: 065
     Dates: start: 20250122
  14. UREMOL [Concomitant]
     Active Substance: UREA
     Indication: Dry skin
     Route: 065
     Dates: start: 20220208
  15. RIVOTRIL [Concomitant]
     Active Substance: CLONAZEPAM
     Indication: Anxiety
     Route: 048
     Dates: start: 20250122
  16. MELATONIN [Concomitant]
     Active Substance: MELATONIN
     Indication: Product used for unknown indication
     Route: 065

REACTIONS (5)
  - Electrocardiogram QT prolonged [Unknown]
  - Dizziness postural [Unknown]
  - Electrocardiogram repolarisation abnormality [Unknown]
  - Weight increased [Unknown]
  - Sinus tachycardia [Recovering/Resolving]

NARRATIVE: CASE EVENT DATE: 20210201
